FAERS Safety Report 9260749 (Version 3)
Quarter: 2013Q2

REPORT INFORMATION
  Report Type: Spontaneous
  Country: FR (occurrence: FR)
  Receive Date: 20130429
  Receipt Date: 20130617
  Transmission Date: 20140414
  Serious: Yes (Hospitalization)
  Sender: FDA-Public Use
  Company Number: FR-009507513-1304FRA016046

PATIENT
  Age: 48 Year
  Sex: Male

DRUGS (2)
  1. XELEVIA [Suspect]
     Indication: TYPE 2 DIABETES MELLITUS
     Dosage: 100 MG, QD
     Route: 048
     Dates: start: 20130307, end: 20130403
  2. VIREAD [Concomitant]
     Dosage: 1 DF, QD

REACTIONS (5)
  - Hepatic function abnormal [Recovered/Resolved]
  - Renal failure acute [Recovered/Resolved]
  - Nausea [Recovered/Resolved]
  - Vomiting [Recovered/Resolved]
  - Diarrhoea [Recovered/Resolved]
